FAERS Safety Report 25373628 (Version 2)
Quarter: 2025Q3

REPORT INFORMATION
  Report Type: Spontaneous
  Country: AR (occurrence: AR)
  Receive Date: 20250529
  Receipt Date: 20250803
  Transmission Date: 20251020
  Serious: Yes (Death, Other)
  Sender: ALEXION PHARMACEUTICALS
  Company Number: AR-AstraZeneca-CH-00878649A

PATIENT
  Age: 21 Year
  Sex: Female

DRUGS (1)
  1. SOLIRIS [Suspect]
     Active Substance: ECULIZUMAB
     Indication: Microangiopathy
     Dosage: 900 MILLIGRAM, Q2W
     Dates: start: 20250510, end: 20250520

REACTIONS (1)
  - Death [Fatal]

NARRATIVE: CASE EVENT DATE: 20250520
